FAERS Safety Report 20895158 (Version 1)
Quarter: 2022Q2

REPORT INFORMATION
  Report Type: Spontaneous
  Country: US (occurrence: US)
  Receive Date: 20220531
  Receipt Date: 20220531
  Transmission Date: 20220721
  Serious: Yes (Hospitalization, Other)
  Sender: FDA-Public Use
  Company Number: US-Global Blood Therapeutics Inc-US-GBT-22-03118

PATIENT
  Age: 59 Year
  Sex: Male

DRUGS (1)
  1. OXBRYTA [Suspect]
     Active Substance: VOXELOTOR
     Indication: Product used for unknown indication
     Route: 048

REACTIONS (7)
  - Haematemesis [Unknown]
  - Sickle cell anaemia with crisis [Not Recovered/Not Resolved]
  - Dizziness [Unknown]
  - Loss of consciousness [Unknown]
  - Fall [Unknown]
  - Head injury [Unknown]
  - Therapy interrupted [Unknown]

NARRATIVE: CASE EVENT DATE: 20220513
